FAERS Safety Report 15708933 (Version 7)
Quarter: 2019Q2

REPORT INFORMATION
  Report Type: Spontaneous
  Country: US (occurrence: US)
  Receive Date: 20181211
  Receipt Date: 20190612
  Transmission Date: 20190711
  Serious: Yes (Hospitalization, Congenital Anomaly, Other)
  Sender: FDA-Public Use
  Company Number: PHHY2015US126033

PATIENT
  Sex: Male

DRUGS (2)
  1. ONDANSETRON [Suspect]
     Active Substance: ONDANSETRON
     Indication: FOETAL EXPOSURE DURING PREGNANCY
     Dosage: MOTHER DOSE: 4 MG, Q6H
     Route: 064
  2. ZOFRAN [Suspect]
     Active Substance: ONDANSETRON HYDROCHLORIDE
     Indication: FOETAL EXPOSURE DURING PREGNANCY
     Dosage: MOTHER DOSE: 01 DF, Q6H
     Route: 064

REACTIONS (57)
  - Congenital tricuspid valve stenosis [Unknown]
  - Cyanosis [Unknown]
  - Sepsis [Unknown]
  - Chronic kidney disease [Unknown]
  - Otitis media chronic [Unknown]
  - Sleep apnoea syndrome [Unknown]
  - Otitis externa fungal [Unknown]
  - Diarrhoea [Unknown]
  - Acarodermatitis [Unknown]
  - Atrial septal defect [Unknown]
  - Tricuspid valve incompetence [Unknown]
  - Immunodeficiency [Unknown]
  - Impetigo [Unknown]
  - Tonsillar hypertrophy [Unknown]
  - Vomiting [Unknown]
  - Upper respiratory tract infection [Unknown]
  - Cerumen impaction [Unknown]
  - Multiple congenital abnormalities [Unknown]
  - Congenital coronary artery malformation [Unknown]
  - Hydronephrosis [Unknown]
  - Pyelocaliectasis [Unknown]
  - Staphylococcal infection [Unknown]
  - Foetal exposure during pregnancy [Unknown]
  - Ear infection [Unknown]
  - Complement deficiency disease [Unknown]
  - Congenital pulmonary valve atresia [Unknown]
  - Hypoplastic right heart syndrome [Unknown]
  - Congenital tricuspid valve atresia [Unknown]
  - Pneumonia [Unknown]
  - Ureteric obstruction [Unknown]
  - Adrenocortical insufficiency neonatal [Unknown]
  - Pyrexia [Unknown]
  - Lethargy [Unknown]
  - Sinusitis [Unknown]
  - Heart disease congenital [Unknown]
  - Patent ductus arteriosus [Unknown]
  - Hypothermia neonatal [Unknown]
  - Generalised oedema [Unknown]
  - Periorbital oedema [Unknown]
  - Mitral valve incompetence [Unknown]
  - Conductive deafness [Unknown]
  - Dermatitis atopic [Unknown]
  - Gastroenteritis [Unknown]
  - Otorrhoea [Unknown]
  - Hyperthermia [Unknown]
  - Eczema [Unknown]
  - Rash erythematous [Unknown]
  - Poor feeding infant [Unknown]
  - Anaemia [Unknown]
  - Cardiomegaly [Unknown]
  - Heart transplant rejection [Unknown]
  - Developmental delay [Unknown]
  - Cardiac failure congestive [Unknown]
  - Injury [Unknown]
  - Rhinitis [Unknown]
  - Adenoidal hypertrophy [Unknown]
  - Eustachian tube dysfunction [Unknown]
